FAERS Safety Report 6849527-3 (Version None)
Quarter: 2010Q3

REPORT INFORMATION
  Report Type: 
  Country: None (occurrence: None)
  Receive Date: 20100716
  Receipt Date: 20100708
  Transmission Date: 20110219
  Serious: Yes (Other)
  Sender: FDA-Public Use
  Company Number: US-PFIZER INC-2010085996

PATIENT
  Sex: Female
  Weight: 81.633 kg

DRUGS (5)
  1. CELEBREX [Suspect]
     Indication: RHEUMATOID ARTHRITIS
     Dosage: 200 MG, 1X/DAY
     Route: 048
     Dates: start: 20100708, end: 20100708
  2. CELEBREX [Suspect]
     Indication: SHOULDER ARTHROPLASTY
  3. METFORMIN HYDROCHLORIDE [Concomitant]
     Indication: DIABETES MELLITUS
     Dosage: 500 MG, 2X/DAY
     Route: 048
  4. GLIMEPIRIDE [Concomitant]
     Indication: DIABETES MELLITUS
     Dosage: 2 MG, 1X/DAY
     Route: 048
  5. ALEVE (CAPLET) [Concomitant]
     Indication: RHEUMATOID ARTHRITIS
     Dosage: 220 MG, 1X/DAY
     Route: 048
     Dates: start: 20100101

REACTIONS (8)
  - EYE SWELLING [None]
  - MALAISE [None]
  - OCULAR HYPERAEMIA [None]
  - OESOPHAGEAL PAIN [None]
  - PRURITUS [None]
  - RASH GENERALISED [None]
  - THROAT TIGHTNESS [None]
  - VOMITING [None]
